FAERS Safety Report 21103391 (Version 1)
Quarter: 2022Q3

REPORT INFORMATION
  Report Type: Spontaneous
  Country: US (occurrence: US)
  Receive Date: 20220720
  Receipt Date: 20220720
  Transmission Date: 20221027
  Serious: Yes (Hospitalization)
  Sender: FDA-Public Use
  Company Number: US-BRISTOL-MYERS SQUIBB COMPANY-2022-072355

PATIENT
  Age: 77 Year
  Sex: Male

DRUGS (3)
  1. SPRYCEL [Suspect]
     Active Substance: DASATINIB
     Indication: Follicular lymphoma
     Route: 048
  2. SPRYCEL [Suspect]
     Active Substance: DASATINIB
     Indication: Chronic myeloid leukaemia
  3. SPRYCEL [Suspect]
     Active Substance: DASATINIB
     Indication: Thrombocytopenia

REACTIONS (2)
  - Pruritus [Unknown]
  - Hospitalisation [Unknown]
